FAERS Safety Report 9085518 (Version 1)
Quarter: 2013Q1

REPORT INFORMATION
  Report Type: Report from Study
  Country: US (occurrence: US)
  Receive Date: 20130131
  Receipt Date: 20130131
  Transmission Date: 20140127
  Serious: No
  Sender: FDA-Public Use
  Company Number: US-ABBOTT-12P-163-0998685-00

PATIENT
  Sex: Male
  Weight: 53.57 kg

DRUGS (2)
  1. HUMIRA [Suspect]
     Indication: PSORIASIS
  2. UNNAMED MEDICATION [Concomitant]
     Indication: HYPERTENSION

REACTIONS (1)
  - Hot flush [Not Recovered/Not Resolved]
